FAERS Safety Report 9031982 (Version 2)
Quarter: 2013Q1

REPORT INFORMATION
  Report Type: Spontaneous
  Country: IE (occurrence: IE)
  Receive Date: 20130125
  Receipt Date: 20130308
  Transmission Date: 20140127
  Serious: Yes (Hospitalization, Other)
  Sender: FDA-Public Use
  Company Number: IE-ASTELLAS-2013EU000450

PATIENT
  Age: 91 Year
  Sex: Female

DRUGS (3)
  1. VESITIRIM [Suspect]
     Indication: POLLAKIURIA
     Dosage: 5 MG, UID/QD
     Route: 048
     Dates: start: 20121113
  2. VESITIRIM [Suspect]
     Dosage: 10 MG, UID/QD
     Route: 048
     Dates: start: 20121126
  3. BUTRANS                            /00444001/ [Concomitant]
     Indication: PAIN
     Dosage: 5 MG, UNKNOWN/D
     Route: 062
     Dates: start: 20121126

REACTIONS (2)
  - Abasia [Recovered/Resolved]
  - Mobility decreased [Unknown]
